FAERS Safety Report 5196923-9 (Version None)
Quarter: 2006Q4

REPORT INFORMATION
  Report Type: 
  Country: None (occurrence: None)
  Receive Date: 20061227
  Receipt Date: 20061218
  Transmission Date: 20070319
  Serious: Yes (Death, Life-Threatening, Hospitalization)
  Sender: FDA-Public Use
  Company Number: 2006145447

PATIENT
  Age: 61 Year
  Sex: Male
  Weight: 68 kg

DRUGS (12)
  1. NORVASC [Suspect]
     Indication: HYPERTENSION
     Dosage: 10 MG (5 MG, 2 IN 1 D), ORAL
     Route: 048
     Dates: start: 20020119, end: 20061101
  2. ZANTAC [Suspect]
     Dosage: 150 MG (75 MG, 2 IN 1 D), ORAL
     Route: 048
     Dates: start: 20030106, end: 20061124
  3. PRAVASTATIN [Suspect]
     Dosage: 10 MG (1 IN 1 D), ORAL
     Route: 048
     Dates: start: 20060309, end: 20061127
  4. OLMETEC (OLMESARTAN) [Suspect]
     Dosage: 20 MG (10 MG, 2 IN 1 D), ORAL
     Route: 048
     Dates: start: 20040807, end: 20061127
  5. ETIZOLAM (ETIZOLAM) [Suspect]
     Dosage: 0.5 MG, ORAL
     Route: 048
     Dates: start: 20011124, end: 20061127
  6. TOLEDOMIN (MILNACIPRAN HYDROCHLORIDE) [Concomitant]
  7. DOGMATYL (SULPIRIDE) [Concomitant]
  8. LOSARTAN POTASSIUM [Concomitant]
  9. CALVAN (BEVANTOLOL HYDROCHLORIDE) [Concomitant]
  10. PL GRAN (CAFFEINE, PARACETAMOL, PROMETHAZINE METHYLENE DISALICYLATE, S [Concomitant]
  11. SERRAPEPTASE (SERRAPEPTASE) [Concomitant]
  12. HUSCODE (CHLORPHENAMINE MALEATE, DIHYDROCODEINE PHOSPHATE, METHYLEPHED [Concomitant]

REACTIONS (5)
  - ACUTE RESPIRATORY DISTRESS SYNDROME [None]
  - BACTERIAL INFECTION [None]
  - CONDITION AGGRAVATED [None]
  - INTERSTITIAL LUNG DISEASE [None]
  - NASOPHARYNGITIS [None]
